FAERS Safety Report 7415408-X (Version None)
Quarter: 2011Q2

REPORT INFORMATION
  Report Type: 
  Country: None (occurrence: None)
  Receive Date: 20110414
  Receipt Date: 20110407
  Transmission Date: 20111010
  Serious: Yes (Hospitalization)
  Sender: FDA-Public Use
  Company Number: B0712808A

PATIENT
  Age: 79 Year
  Sex: Female
  Weight: 57 kg

DRUGS (5)
  1. SERACTIL [Concomitant]
     Indication: PAIN
     Dosage: 300MG TWICE PER DAY
  2. PANTOLOC [Concomitant]
     Indication: GASTRITIS PROPHYLAXIS
     Dosage: 40MG PER DAY
  3. DIPIDOLOR [Concomitant]
  4. PERFALGAN [Concomitant]
  5. CUROCEF [Suspect]
     Indication: ANTIBIOTIC PROPHYLAXIS
     Dosage: 1.5MG TWICE PER DAY
     Route: 042

REACTIONS (1)
  - DRUG ERUPTION [None]
